FAERS Safety Report 8548053-3 (Version None)
Quarter: 2012Q3

REPORT INFORMATION
  Report Type: 
  Country: None (occurrence: None)
  Receive Date: 20120730
  Receipt Date: 20120723
  Transmission Date: 20120928
  Serious: Yes (Life-Threatening)
  Sender: FDA-Public Use
  Company Number: DE-ROCHE-1092304

PATIENT
  Sex: Female
  Weight: 52 kg

DRUGS (3)
  1. XELODA [Suspect]
     Indication: COLORECTAL CANCER METASTATIC
     Dosage: 3 TABLETS IN THE MORNING AND 2 TABLETS IN THE EVENING
     Dates: start: 20120711
  2. IRINOTECAN HCL [Suspect]
     Indication: COLORECTAL CANCER METASTATIC
     Dosage: 1 X 2 HOURS
  3. AVASTIN [Suspect]
     Indication: COLORECTAL CANCER METASTATIC
     Dosage: 1 X 90 MINUTES

REACTIONS (3)
  - SYNCOPE [None]
  - PULMONARY OEDEMA [None]
  - DEHYDRATION [None]
